FAERS Safety Report 10146252 (Version 1)
Quarter: 2014Q2

REPORT INFORMATION
  Report Type: Spontaneous
  Country: US (occurrence: US)
  Receive Date: 20140501
  Receipt Date: 20140501
  Transmission Date: 20141212
  Serious: No
  Sender: FDA-Public Use
  Company Number: US-PFIZER INC-2014119701

PATIENT
  Age: 63 Year
  Sex: Female
  Weight: 74.83 kg

DRUGS (6)
  1. ESTRING [Suspect]
     Indication: POLLAKIURIA
     Dosage: UNK
     Route: 067
     Dates: start: 201310, end: 20140427
  2. ESTRING [Suspect]
     Indication: BLOOD OESTROGEN DECREASED
  3. ESTRING [Suspect]
     Indication: URINARY TRACT INFECTION
  4. SIMVASTATIN [Concomitant]
     Indication: BLOOD CHOLESTEROL INCREASED
     Dosage: UNK
  5. ATENOLOL [Concomitant]
     Indication: HYPERTENSION
     Dosage: 25 MG, UNK
  6. AMLODIPINE [Concomitant]
     Indication: HYPERTENSION
     Dosage: 5 MG, UNK

REACTIONS (1)
  - Vulvovaginal pruritus [Not Recovered/Not Resolved]
